FAERS Safety Report 4494998-3 (Version None)
Quarter: 2004Q4

REPORT INFORMATION
  Report Type: 
  Country: None (occurrence: None)
  Receive Date: 20041103
  Receipt Date: 20041018
  Transmission Date: 20050328
  Serious: Yes (Hospitalization)
  Sender: FDA-Public Use
  Company Number: 205244

PATIENT
  Age: 37 Year
  Weight: 86.1834 kg

DRUGS (6)
  1. AVONEX [Suspect]
     Indication: MULTIPLE SCLEROSIS
     Dosage: 30 MCG QW IM
     Route: 030
     Dates: start: 19980101, end: 20040101
  2. AVONEX [Suspect]
     Indication: MULTIPLE SCLEROSIS
     Dosage: 30 MCG QW IM
     Route: 030
     Dates: start: 20040101
  3. NEURONTIN [Concomitant]
  4. PAIN MEDICATION (NOS) [Concomitant]
  5. ZANAFLEX [Concomitant]
  6. CARBAMAZEPINE [Concomitant]

REACTIONS (1)
  - NO ADVERSE DRUG EFFECT [None]
